FAERS Safety Report 21753212 (Version 1)
Quarter: 2022Q4

REPORT INFORMATION
  Report Type: Spontaneous
  Country: US (occurrence: US)
  Receive Date: 20221220
  Receipt Date: 20221220
  Transmission Date: 20230112
  Serious: No
  Sender: FDA-Public Use
  Company Number: US-ORGANON-O2212USA000937

PATIENT
  Sex: Female
  Weight: 62.585 kg

DRUGS (1)
  1. NEXPLANON [Suspect]
     Active Substance: ETONOGESTREL
     Dosage: 1 IMPLANT, DOSE/FREQUENCY: ^EVERY 5 YEARS^ IN LEFT ARM
     Route: 059
     Dates: start: 20190603

REACTIONS (5)
  - Weight increased [Not Recovered/Not Resolved]
  - Menstruation irregular [Unknown]
  - Arthralgia [Not Recovered/Not Resolved]
  - Incorrect product administration duration [Unknown]
  - Product prescribing issue [Unknown]

NARRATIVE: CASE EVENT DATE: 20190101
